FAERS Safety Report 5944972-2 (Version None)
Quarter: 2008Q4

REPORT INFORMATION
  Report Type: 
  Country: None (occurrence: None)
  Receive Date: 20081107
  Receipt Date: 20081031
  Transmission Date: 20090506
  Serious: Yes (Hospitalization, Other)
  Sender: FDA-Public Use
  Company Number: US-MERCK-0802USA01620

PATIENT
  Age: 54 Year
  Sex: Female
  Weight: 53 kg

DRUGS (2)
  1. FOSAMAX [Suspect]
     Indication: OSTEOPOROSIS PROPHYLAXIS
     Route: 048
     Dates: start: 20020101, end: 20070501
  2. FOSAMAX [Suspect]
     Route: 048

REACTIONS (13)
  - ACCIDENT AT WORK [None]
  - ADVERSE EVENT [None]
  - APPENDICEAL MUCOCOELE [None]
  - ASTHMA [None]
  - BLEPHARITIS [None]
  - DRUG ADMINISTRATION ERROR [None]
  - GASTROOESOPHAGEAL REFLUX DISEASE [None]
  - HAEMATURIA [None]
  - IMPAIRED HEALING [None]
  - MASS [None]
  - NASAL SEPTUM DEVIATION [None]
  - OSTEONECROSIS [None]
  - THERMAL BURN [None]
